FAERS Safety Report 7837733 (Version 3)
Quarter: 2014Q1

REPORT INFORMATION
  Report Type: Spontaneous
  Country: US (occurrence: US)
  Receive Date: 20110302
  Receipt Date: 20140314
  Transmission Date: 20141002
  Serious: Yes (Hospitalization, Other)
  Sender: FDA-Public Use
  Company Number: US-PFIZER INC-2009276468

PATIENT
  Age: 53 Year
  Sex: Female

DRUGS (1)
  1. DILANTIN [Suspect]
     Dosage: 100 MG, 1X/DAY (3 CAPSULES AT BED TIME)
     Route: 048
     Dates: start: 20061026, end: 20071127

REACTIONS (1)
  - Stevens-Johnson syndrome [Unknown]
